FAERS Safety Report 5242939-3 (Version None)
Quarter: 2007Q1

REPORT INFORMATION
  Report Type: 
  Country: None (occurrence: None)
  Receive Date: 20070221
  Receipt Date: 20070209
  Transmission Date: 20070707
  Serious: Yes (Death)
  Sender: FDA-Public Use
  Company Number: HQWYE554213FEB07

PATIENT
  Age: 37 Year
  Sex: Female
  Weight: 44 kg

DRUGS (7)
  1. MYLOTARG [Suspect]
     Indication: ACUTE MYELOID LEUKAEMIA RECURRENT
     Route: 041
     Dates: start: 20060113, end: 20060113
  2. MYLOTARG [Suspect]
     Route: 041
     Dates: start: 20060127, end: 20060127
  3. HEPARIN SODIUM INJECTION [Concomitant]
     Indication: PROPHYLAXIS
     Route: 041
     Dates: start: 20060113
  4. FUNGUARD [Concomitant]
     Indication: PROPHYLAXIS
     Route: 041
     Dates: start: 20051229
  5. BUSULFAN [Suspect]
  6. URSO [Concomitant]
     Indication: PROPHYLAXIS
     Route: 048
     Dates: start: 20060112
  7. OMEPRAL [Concomitant]
     Indication: PROPHYLAXIS
     Route: 048
     Dates: start: 20051226

REACTIONS (2)
  - THROMBOTIC MICROANGIOPATHY [None]
  - VENOOCCLUSIVE LIVER DISEASE [None]
